FAERS Safety Report 21634336 (Version 1)
Quarter: 2022Q4

REPORT INFORMATION
  Report Type: Report from Study
  Country: US (occurrence: US)
  Receive Date: 20221123
  Receipt Date: 20221123
  Transmission Date: 20230113
  Serious: Yes (Other)
  Sender: FDA-Public Use
  Company Number: US-OTSUKA-2022_031635

PATIENT
  Age: 36 Year
  Sex: Male
  Weight: 96.16 kg

DRUGS (4)
  1. TOLVAPTAN [Suspect]
     Active Substance: TOLVAPTAN
     Indication: Congenital cystic kidney disease
     Dosage: 30 MG, QD (MORNING)
     Route: 065
     Dates: start: 201903
  2. TOLVAPTAN [Suspect]
     Active Substance: TOLVAPTAN
     Indication: Congenital cystic kidney disease
     Dosage: 15 MG, QD (EVENING)
     Route: 065
     Dates: start: 201903
  3. TOLVAPTAN [Suspect]
     Active Substance: TOLVAPTAN
     Dosage: UNK
     Route: 065
     Dates: start: 20220507, end: 20220712
  4. TOLVAPTAN [Suspect]
     Active Substance: TOLVAPTAN
     Dosage: 1 DF, QD
     Route: 065

REACTIONS (14)
  - Gout [Unknown]
  - Rash [Unknown]
  - Swollen tongue [Unknown]
  - Lip swelling [Recovered/Resolved]
  - Circumoral swelling [Recovered/Resolved]
  - Oral pain [Recovered/Resolved]
  - COVID-19 [Unknown]
  - Drug intolerance [Unknown]
  - Urticaria [Recovered/Resolved]
  - Thirst [Unknown]
  - Polyuria [Unknown]
  - Diarrhoea [Unknown]
  - Underdose [Unknown]
  - Incorrect dosage administered [Unknown]

NARRATIVE: CASE EVENT DATE: 20190301
